FAERS Safety Report 25921928 (Version 1)
Quarter: 2025Q4

REPORT INFORMATION
  Report Type: Spontaneous
  Country: US (occurrence: US)
  Receive Date: 20251015
  Receipt Date: 20251015
  Transmission Date: 20260118
  Serious: No
  Sender: AXSOME THERAPEUTICS
  Company Number: US-AXS-AXS202509-001705

PATIENT
  Age: 42 Year

DRUGS (1)
  1. AUVELITY [Suspect]
     Active Substance: BUPROPION HYDROCHLORIDE\DEXTROMETHORPHAN HYDROBROMIDE
     Indication: Product used for unknown indication
     Dosage: PATIENT ON DAY 4 OF AUVELITY?
     Route: 048

REACTIONS (4)
  - Brain fog [Unknown]
  - Abnormal dreams [Unknown]
  - Fatigue [Unknown]
  - Headache [Unknown]
